FAERS Safety Report 5273147-8 (Version None)
Quarter: 2007Q1

REPORT INFORMATION
  Report Type: 
  Country: None (occurrence: None)
  Receive Date: 20070322
  Receipt Date: 20070313
  Transmission Date: 20070707
  Serious: Yes (Death, Other)
  Sender: FDA-Public Use
  Company Number: US-PFIZER INC-2007019449

PATIENT
  Sex: Male

DRUGS (5)
  1. SERTRALINE [Suspect]
  2. TRAZODONE HYDROCHLORIDE [Suspect]
  3. FENTANYL [Suspect]
     Indication: BACK PAIN
     Route: 048
     Dates: end: 20060101
  4. COCAINE [Suspect]
  5. LORTAB [Concomitant]

REACTIONS (5)
  - ACCIDENTAL DEATH [None]
  - DRUG ABUSER [None]
  - DRUG TOXICITY [None]
  - INTENTIONAL DRUG MISUSE [None]
  - MULTI-ORGAN FAILURE [None]
